FAERS Safety Report 14673768 (Version 1)
Quarter: 2018Q1

REPORT INFORMATION
  Report Type: Spontaneous
  Country: US (occurrence: US)
  Receive Date: 20180322
  Receipt Date: 20180322
  Transmission Date: 20180509
  Serious: No
  Sender: FDA-Public Use
  Company Number: None

PATIENT
  Age: 73 Year
  Sex: Male
  Weight: 81.9 kg

DRUGS (8)
  1. METOPROLOL TARTRATE. [Concomitant]
     Active Substance: METOPROLOL TARTRATE
  2. PRESERVISION VITAMINS [Concomitant]
  3. STAINS [Concomitant]
  4. 81 MG ASPIRIN [Concomitant]
     Active Substance: ASPIRIN
  5. LOSARTAN. [Concomitant]
     Active Substance: LOSARTAN
  6. RANITIDINE 150 MG [Suspect]
     Active Substance: RANITIDINE
     Indication: PRODUCT USED FOR UNKNOWN INDICATION
     Dosage: ?          QUANTITY:2 TABLET(S);?
     Route: 048
     Dates: start: 20180222, end: 20180319
  7. GLYBURIDE. [Concomitant]
     Active Substance: GLYBURIDE
  8. BUMETENIDE [Concomitant]

REACTIONS (4)
  - Vision blurred [None]
  - Drug ineffective [None]
  - Somnolence [None]
  - Confusional state [None]

NARRATIVE: CASE EVENT DATE: 20180319
